FAERS Safety Report 4498243-4 (Version None)
Quarter: 2004Q3

REPORT INFORMATION
  Report Type: 
  Country: None (occurrence: None)
  Receive Date: 20040927
  Receipt Date: 20040608
  Transmission Date: 20050211
  Serious: No
  Sender: FDA-Public Use
  Company Number: USA040669693

PATIENT
  Age: 10 Year
  Sex: Male
  Weight: 57 kg

DRUGS (2)
  1. STRATTERA [Suspect]
     Dosage: 120 MG DAY
     Dates: start: 20040301
  2. CONCERTA [Concomitant]

REACTIONS (2)
  - DRUG INEFFECTIVE [None]
  - PRESCRIBED OVERDOSE [None]
